FAERS Safety Report 14166871 (Version 2)
Quarter: 2018Q4

REPORT INFORMATION
  Report Type: Spontaneous
  Country: CH (occurrence: CH)
  Receive Date: 20171107
  Receipt Date: 20181204
  Transmission Date: 20190204
  Serious: Yes (Other)
  Sender: FDA-Public Use
  Company Number: CH-PFIZER INC-2017456079

PATIENT
  Age: 8 Year
  Sex: Male
  Weight: 53 kg

DRUGS (1)
  1. DALACIN C [Suspect]
     Active Substance: CLINDAMYCIN PHOSPHATE
     Indication: TOOTH ABSCESS
     Dosage: 175 MG, 2X/DAY
     Route: 048
     Dates: start: 20171011, end: 20171017

REACTIONS (3)
  - Toxic skin eruption [Unknown]
  - Pruritus [Unknown]
  - Rash generalised [Unknown]

NARRATIVE: CASE EVENT DATE: 20171019
